FAERS Safety Report 21687616 (Version 1)
Quarter: 2022Q4

REPORT INFORMATION
  Report Type: Report from Study
  Country: FR (occurrence: FR)
  Receive Date: 20221206
  Receipt Date: 20221206
  Transmission Date: 20230112
  Serious: Yes (Other)
  Sender: FDA-Public Use
  Company Number: FR-MYLANLABS-2022M1135987

PATIENT
  Age: 63 Year
  Sex: Female

DRUGS (5)
  1. PREDNISONE [Suspect]
     Active Substance: PREDNISONE
     Indication: Giant cell arteritis
     Dosage: INITIAL DOSAGE NOT STATED
     Route: 048
  2. PREDNISONE [Suspect]
     Active Substance: PREDNISONE
     Dosage: 40 MILLIGRAM, QD
     Route: 048
  3. ANAKINRA [Concomitant]
     Active Substance: ANAKINRA
     Indication: Giant cell arteritis
     Dosage: 100 MILLIGRAM, QD INFUSION
     Route: 058
  4. ANAKINRA [Concomitant]
     Active Substance: ANAKINRA
     Dosage: 100 MILLIGRAM, Q2D, INFUSION
     Route: 058
  5. ANAKINRA [Concomitant]
     Active Substance: ANAKINRA
     Dosage: 100 MILLIGRAM, Q3D, INFUSION
     Route: 058

REACTIONS (1)
  - Drug resistance [Unknown]
